FAERS Safety Report 18139133 (Version 1)
Quarter: 2020Q3

REPORT INFORMATION
  Report Type: Spontaneous
  Country: NL (occurrence: NL)
  Receive Date: 20200812
  Receipt Date: 20200812
  Transmission Date: 20201103
  Serious: Yes (Other)
  Sender: FDA-Public Use
  Company Number: NL-TEVA-2020-NL-1813224

PATIENT
  Age: 67 Year
  Sex: Male
  Weight: 73 kg

DRUGS (4)
  1. CLOPIDOGREL TABLET   75MG / BRAND NAME NOT SPECIFIED [Concomitant]
     Dosage: 75 MG (MILLIGRAM), THERAPY START AND END DATE: ASKED BUT UNKNOWN
  2. ALENDRONINEZUUR TABLET 70MG / BRAND NAME NOT SPECIFIED [Concomitant]
     Dosage: 70 MG (MILLIGRAM), THERAPY START AND END DATE: ASKED BUT UNKNOWN
  3. PREDNISOLON TABLET 5MG / BRAND NAME NOT SPECIFIED [Suspect]
     Active Substance: PREDNISOLONE
     Indication: POLYMYALGIA RHEUMATICA
     Dosage: 10 MILLIGRAM DAILY; THERAPY END DATE : ASKED BUT UNKNOWN
     Dates: start: 20190831
  4. PANTOPRAZOL TABLET MSR 20MG / MAAGZUURTABLET PANTOPRAZOL SAM TABLET MS [Concomitant]
     Dosage: 20 MG (MILLIGRAM), THERAPY START AND END DATE: ASKED BUT UNKNOWN

REACTIONS (3)
  - Skin atrophy [Not Recovered/Not Resolved]
  - Haemorrhage [Not Recovered/Not Resolved]
  - Haematoma [Not Recovered/Not Resolved]

NARRATIVE: CASE EVENT DATE: 20200601
